FAERS Safety Report 9229965 (Version 1)
Quarter: 2013Q2

REPORT INFORMATION
  Report Type: Spontaneous
  Country: US (occurrence: None)
  Receive Date: 20130412
  Receipt Date: 20130412
  Transmission Date: 20140414
  Serious: Yes (Other)
  Sender: FDA-Public Use
  Company Number: None

PATIENT
  Age: 57 Year
  Sex: Male

DRUGS (1)
  1. ZELBORAF, [Suspect]
     Route: 048
     Dates: start: 20130318

REACTIONS (2)
  - Rash [None]
  - Swelling face [None]
